FAERS Safety Report 11955343 (Version 2)
Quarter: 2016Q1

REPORT INFORMATION
  Report Type: Report from Study
  Country: US (occurrence: US)
  Receive Date: 20160125
  Receipt Date: 20160202
  Transmission Date: 20160526
  Serious: No
  Sender: FDA-Public Use
  Company Number: US-ABBVIE-15K-163-1348203-00

PATIENT
  Sex: Male
  Weight: 41.31 kg

DRUGS (1)
  1. HUMIRA [Suspect]
     Active Substance: ADALIMUMAB
     Indication: CROHN^S DISEASE
     Route: 058
     Dates: start: 20150115

REACTIONS (4)
  - Injection site pain [Unknown]
  - Poor quality sleep [Unknown]
  - Increased appetite [Unknown]
  - Impatience [Unknown]

NARRATIVE: CASE EVENT DATE: 2015
